FAERS Safety Report 9846356 (Version 1)
Quarter: 2014Q1

REPORT INFORMATION
  Report Type: Report from Study
  Country: PE (occurrence: PE)
  Receive Date: 20140127
  Receipt Date: 20140127
  Transmission Date: 20141002
  Serious: Yes (Death)
  Sender: FDA-Public Use
  Company Number: PE-BRISTOL-MYERS SQUIBB COMPANY-20095378

PATIENT
  Sex: Female

DRUGS (1)
  1. GLUCOVANCE [Suspect]

REACTIONS (1)
  - Cardiac arrest [Fatal]
